FAERS Safety Report 22181589 (Version 2)
Quarter: 2023Q2

REPORT INFORMATION
  Report Type: Spontaneous
  Country: AU (occurrence: None)
  Receive Date: 20230406
  Receipt Date: 20230413
  Transmission Date: 20230721
  Serious: Yes (Other)
  Sender: FDA-Public Use
  Company Number: AU-ROCHE-3324675

PATIENT
  Age: 75 Year
  Sex: Male

DRUGS (11)
  1. RITUXIMAB [Suspect]
     Active Substance: RITUXIMAB
     Indication: Diffuse large B-cell lymphoma
     Dosage: 1L TREATMENT, R-CHOP
     Route: 065
     Dates: start: 20200625, end: 202102
  2. RITUXIMAB [Suspect]
     Active Substance: RITUXIMAB
     Dosage: 2L TREATMENT, R-GDP
     Route: 065
     Dates: start: 202103, end: 202105
  3. CYCLOPHOSPHAMIDE\DOXORUBICIN\PREDNISONE\VINCRISTINE [Suspect]
     Active Substance: CYCLOPHOSPHAMIDE\DOXORUBICIN\PREDNISONE\VINCRISTINE
     Indication: Diffuse large B-cell lymphoma
     Dosage: 1L TREATMENT, R-CHOP
     Route: 065
     Dates: start: 20200625, end: 202102
  4. CISPLATIN [Suspect]
     Active Substance: CISPLATIN
     Indication: Diffuse large B-cell lymphoma
     Dosage: 2L TREATMENT, R-GDP
     Route: 065
     Dates: start: 202103, end: 202105
  5. DEXAMETHASONE [Suspect]
     Active Substance: DEXAMETHASONE
     Indication: Diffuse large B-cell lymphoma
     Dosage: 2L TREATMENT, R-GDP
     Route: 065
     Dates: start: 202103, end: 202105
  6. DEXAMETHASONE [Suspect]
     Active Substance: DEXAMETHASONE
     Dosage: 4L TREATMENT, DHAC, PROGRESSIVE DISEASE
     Route: 065
     Dates: start: 20230223
  7. KYMRIAH [Suspect]
     Active Substance: TISAGENLECLEUCEL
     Indication: Diffuse large B-cell lymphoma
     Dosage: 3L TREATMENT, KYMRIAH
     Route: 065
     Dates: start: 202106, end: 202106
  8. CARBOPLATIN [Suspect]
     Active Substance: CARBOPLATIN
     Indication: Diffuse large B-cell lymphoma
     Dosage: 4L TREATMENT, DHAC, PROGRESSIVE DISEASE
     Route: 065
     Dates: start: 20230223
  9. CYTARABINE [Suspect]
     Active Substance: CYTARABINE
     Indication: Diffuse large B-cell lymphoma
     Dosage: 4L TREATMENT, DHAC, PROGRESSIVE DISEASE
     Route: 065
     Dates: start: 20230223
  10. METHOTREXATE [Suspect]
     Active Substance: METHOTREXATE
     Indication: Diffuse large B-cell lymphoma
     Route: 065
     Dates: start: 20200625
  11. GEMCITABINE [Suspect]
     Active Substance: GEMCITABINE

REACTIONS (5)
  - Diffuse large B-cell lymphoma [Unknown]
  - Febrile neutropenia [Recovered/Resolved]
  - Sepsis [Unknown]
  - Neuropathy peripheral [Unknown]
  - Diffuse large B-cell lymphoma recurrent [Unknown]

NARRATIVE: CASE EVENT DATE: 20230301
